FAERS Safety Report 10968040 (Version 1)
Quarter: 2015Q1

REPORT INFORMATION
  Report Type: Spontaneous
  Country: IR (occurrence: IR)
  Receive Date: 20150330
  Receipt Date: 20150330
  Transmission Date: 20150721
  Serious: Yes (Hospitalization, Other)
  Sender: FDA-Public Use
  Company Number: IR-MYLANLABS-2015M1010070

PATIENT

DRUGS (2)
  1. DEXAMETHASONE. [Suspect]
     Active Substance: DEXAMETHASONE
     Indication: WEIGHT INCREASED
     Dosage: 7 TABLETS WITH 5 MG DOSAGE DAILY FOR 4 YEARS
     Route: 048
  2. DEXAMETHASONE. [Suspect]
     Active Substance: DEXAMETHASONE
     Indication: OFF LABEL USE

REACTIONS (4)
  - Brain abscess [Recovered/Resolved]
  - Overdose [Unknown]
  - Oral candidiasis [Unknown]
  - Adrenal insufficiency [Unknown]
